FAERS Safety Report 14340626 (Version 1)
Quarter: 2018Q1

REPORT INFORMATION
  Report Type: Spontaneous
  Country: FR (occurrence: FR)
  Receive Date: 20180101
  Receipt Date: 20180101
  Transmission Date: 20180509
  Serious: Yes (Other)
  Sender: FDA-Public Use
  Company Number: US-ASTRAZENECA-2018SE00408

PATIENT

DRUGS (1)
  1. SYNAGIS [Suspect]
     Active Substance: PALIVIZUMAB
     Indication: BRONCHIOLITIS
     Route: 030

REACTIONS (4)
  - Crying [Unknown]
  - Screaming [Unknown]
  - Respiratory arrest [Unknown]
  - Injection site pain [Unknown]
